FAERS Safety Report 20957547 (Version 3)
Quarter: 2023Q4

REPORT INFORMATION
  Report Type: Spontaneous
  Country: US (occurrence: US)
  Receive Date: 20220614
  Receipt Date: 20231017
  Transmission Date: 20240110
  Serious: Yes (Other)
  Sender: FDA-Public Use
  Company Number: US-PFIZER INC-PV202200000380

PATIENT
  Age: 74 Year
  Sex: Female

DRUGS (1)
  1. IBRANCE [Suspect]
     Active Substance: PALBOCICLIB
     Indication: Breast cancer female
     Dosage: 100 MG DAILY X 21 DAYS. THEN 7 DAYS
     Route: 048

REACTIONS (11)
  - Pulmonary embolism [Unknown]
  - Neutropenia [Unknown]
  - Thrombocytopenia [Unknown]
  - Neoplasm progression [Unknown]
  - Endometrial thickening [Unknown]
  - Arthralgia [Unknown]
  - Pulmonary mass [Unknown]
  - Cancer fatigue [Unknown]
  - Back pain [Unknown]
  - Tongue geographic [Unknown]
  - Tumour marker increased [Unknown]
